FAERS Safety Report 18886413 (Version 1)
Quarter: 2021Q1

REPORT INFORMATION
  Report Type: Spontaneous
  Country: AU (occurrence: AU)
  Receive Date: 20210212
  Receipt Date: 20210212
  Transmission Date: 20210420
  Serious: Yes (Other)
  Sender: FDA-Public Use
  Company Number: AU-ASTRAZENECA-2021A044097

PATIENT
  Age: 60 Year
  Sex: Male

DRUGS (1)
  1. DURVALUMAB. [Suspect]
     Active Substance: DURVALUMAB
     Indication: NON-SMALL CELL LUNG CANCER STAGE III
     Dosage: 10ML/KG EVERY TWO WEEKS
     Route: 042
     Dates: start: 202008

REACTIONS (1)
  - Malignant neoplasm progression [Unknown]
